FAERS Safety Report 16695523 (Version 1)
Quarter: 2019Q3

REPORT INFORMATION
  Report Type: Spontaneous
  Country: IT (occurrence: IT)
  Receive Date: 20190813
  Receipt Date: 20190813
  Transmission Date: 20191004
  Serious: Yes (Other)
  Sender: FDA-Public Use
  Company Number: IT-ALK-ABELLO A/S-2019AA002893

PATIENT

DRUGS (1)
  1. ACARIZAX 12 SQ-HDM [Suspect]
     Active Substance: DERMATOPHAGOIDES FARINAE\DERMATOPHAGOIDES PTERONYSSINUS
     Indication: RHINITIS ALLERGIC
     Dosage: UNK
     Route: 048
     Dates: start: 20190709, end: 20190717

REACTIONS (6)
  - Lip oedema [Recovered/Resolved]
  - Secretion discharge [Recovered/Resolved]
  - Palatal oedema [Recovered/Resolved]
  - Rhinitis [Recovered/Resolved]
  - Laryngeal oedema [Recovered/Resolved]
  - Nasal turbinate hypertrophy [Recovered/Resolved]

NARRATIVE: CASE EVENT DATE: 20190717
